FAERS Safety Report 4753506-X (Version None)
Quarter: 2005Q3

REPORT INFORMATION
  Report Type: 
  Country: None (occurrence: None)
  Receive Date: 20050824
  Receipt Date: 20050812
  Transmission Date: 20060218
  Serious: Yes (Other)
  Sender: FDA-Public Use
  Company Number: HQWYE304807JUN05

PATIENT
  Age: 54 Year
  Sex: Male
  Weight: 84 kg

DRUGS (10)
  1. RAPAMUNE [Suspect]
     Indication: PROPHYLAXIS AGAINST TRANSPLANT REJECTION
     Dosage: 5 MG 1X PER 1 DAY, ORAL
     Route: 048
     Dates: start: 20041212
  2. ZENAPAX [Concomitant]
  3. TACROLIMUS (TACROLIMUS) [Concomitant]
  4. PREDNISONE [Concomitant]
  5. VERAPAMIL [Concomitant]
  6. TOPROL-XL [Concomitant]
  7. HUMULIN (INSULIN HUMAN) [Concomitant]
  8. HUMALOG [Concomitant]
  9. ZOCOR [Concomitant]
  10. CARDIZEM [Concomitant]

REACTIONS (4)
  - BLOOD CREATINE INCREASED [None]
  - BLOOD UREA INCREASED [None]
  - DRUG INEFFECTIVE [None]
  - KIDNEY TRANSPLANT REJECTION [None]
